FAERS Safety Report 6215743-7 (Version None)
Quarter: 2009Q2

REPORT INFORMATION
  Report Type: 
  Country: None (occurrence: None)
  Receive Date: 20090605
  Receipt Date: 20090527
  Transmission Date: 20091009
  Serious: Yes (Other)
  Sender: FDA-Public Use
  Company Number: US-BAYER-200920036NA

PATIENT
  Age: 29 Year
  Sex: Female

DRUGS (1)
  1. MIRENA [Suspect]
     Indication: CONTRACEPTION
     Route: 015
     Dates: start: 20090210, end: 20090518

REACTIONS (5)
  - ABDOMINAL PAIN LOWER [None]
  - HYPOMENORRHOEA [None]
  - MEDICAL DEVICE DISCOMFORT [None]
  - PELVIC INFLAMMATORY DISEASE [None]
  - VAGINITIS BACTERIAL [None]
